FAERS Safety Report 11140258 (Version 1)
Quarter: 2015Q2

REPORT INFORMATION
  Report Type: Spontaneous
  Country: AU (occurrence: AU)
  Receive Date: 20150527
  Receipt Date: 20150527
  Transmission Date: 20150821
  Serious: Yes (Hospitalization)
  Sender: FDA-Public Use
  Company Number: AU-ACTAVIS-2015-10194

PATIENT
  Age: 63 Year
  Sex: Male

DRUGS (1)
  1. CARBAMAZEPINE (UNKNOWN) [Suspect]
     Active Substance: CARBAMAZEPINE
     Indication: PARTIAL SEIZURES
     Dosage: 200 MG, BID
     Route: 065
     Dates: start: 20101017

REACTIONS (4)
  - Drug reaction with eosinophilia and systemic symptoms [Recovered/Resolved]
  - Allergic granulomatous angiitis [Recovered/Resolved]
  - Drug administration error [Recovered/Resolved]
  - Gallbladder disorder [Recovered/Resolved]
